FAERS Safety Report 4982363-1 (Version None)
Quarter: 2006Q2

REPORT INFORMATION
  Report Type: 
  Country: None (occurrence: None)
  Receive Date: 20060424
  Receipt Date: 20060424
  Transmission Date: 20061013
  Serious: Yes (Hospitalization)
  Sender: FDA-Public Use
  Company Number: None

PATIENT
  Age: 46 Year
  Sex: Male
  Weight: 77 kg

DRUGS (3)
  1. IFOSFAMIDE [Suspect]
     Indication: LYMPHOMA
     Dosage: 10 GM X1 IV DRIP
     Route: 041
     Dates: start: 20060209, end: 20060210
  2. IFOSFAMIDE [Suspect]
     Indication: NATURAL KILLER-CELL LEUKAEMIA
     Dosage: 10 GM X1 IV DRIP
     Route: 041
     Dates: start: 20060209, end: 20060210
  3. MESNA [Suspect]
     Dosage: 10 GM X1 IV DRIP
     Route: 041
     Dates: start: 20060209, end: 20060210

REACTIONS (10)
  - AMNESIA [None]
  - APHASIA [None]
  - BRADYCARDIA [None]
  - CONFUSIONAL STATE [None]
  - DIZZINESS [None]
  - DYSKINESIA [None]
  - LOSS OF CONSCIOUSNESS [None]
  - MENTAL STATUS CHANGES [None]
  - NEUROTOXICITY [None]
  - SWELLING [None]
